FAERS Safety Report 24982239 (Version 1)
Quarter: 2025Q1

REPORT INFORMATION
  Report Type: Spontaneous
  Country: US (occurrence: None)
  Receive Date: 20250216
  Receipt Date: 20250216
  Transmission Date: 20250408
  Serious: Yes (Other)
  Sender: FDA-CTU
  Company Number: None

PATIENT
  Age: 73 Year
  Sex: Female
  Weight: 34.65 kg

DRUGS (11)
  1. TRELEGY ELLIPTA [Suspect]
     Active Substance: FLUTICASONE FUROATE\UMECLIDINIUM BROMIDE\VILANTEROL TRIFENATATE
     Indication: Chronic obstructive pulmonary disease
     Dosage: FREQUENCY : DAILY;?
     Route: 055
     Dates: start: 20250213, end: 20250216
  2. AMLODIPINE [Concomitant]
     Active Substance: AMLODIPINE BESYLATE
  3. LISINOPRIL [Concomitant]
     Active Substance: LISINOPRIL
  4. BENZONATATE [Concomitant]
     Active Substance: BENZONATATE
  5. EZETIMIBE [Concomitant]
     Active Substance: EZETIMIBE
  6. BACLOFEN [Concomitant]
     Active Substance: BACLOFEN
  7. NORCO [Concomitant]
     Active Substance: ACETAMINOPHEN\HYDROCODONE BITARTRATE
  8. LOW-DOSE ASPIRIN [Concomitant]
     Active Substance: ASPIRIN
  9. Vitamins A [Concomitant]
  10. C [Concomitant]
  11. D [Concomitant]

REACTIONS (3)
  - Paraesthesia [None]
  - Paraesthesia [None]
  - Insomnia [None]

NARRATIVE: CASE EVENT DATE: 20250214
